FAERS Safety Report 18643221 (Version 5)
Quarter: 2021Q1

REPORT INFORMATION
  Report Type: Spontaneous
  Country: US (occurrence: US)
  Receive Date: 20201221
  Receipt Date: 20210107
  Transmission Date: 20210419
  Serious: Yes (Hospitalization)
  Sender: FDA-Public Use
  Company Number: US-CELGENEUS-USA-20201203318

PATIENT
  Age: 57 Year
  Sex: Male
  Weight: 86.26 kg

DRUGS (6)
  1. POMALYST [Suspect]
     Active Substance: POMALIDOMIDE
     Indication: NON-HODGKIN^S LYMPHOMA
     Dosage: 5 MILLIGRAM
     Route: 048
     Dates: start: 20201022
  2. GABAPENTIN. [Concomitant]
     Active Substance: GABAPENTIN
     Indication: RADICULOPATHY
     Dosage: 400 MILLIGRAM
     Route: 048
     Dates: start: 2017
  3. ASPIRIN. [Concomitant]
     Active Substance: ASPIRIN
     Indication: PROPHYLAXIS
     Dosage: 81 MILLIGRAM
     Route: 048
     Dates: start: 20201022, end: 20201209
  4. DEXAMETHASONE. [Concomitant]
     Active Substance: DEXAMETHASONE
     Indication: STEROID WITHDRAWAL SYNDROME
     Dosage: 8 MILLIGRAM
     Route: 048
     Dates: start: 20201210
  5. LEVOTHYROXINE SODIUM. [Concomitant]
     Active Substance: LEVOTHYROXINE SODIUM
     Indication: HYPOTHYROIDISM
     Route: 048
     Dates: start: 2016
  6. POMALYST [Suspect]
     Active Substance: POMALIDOMIDE
     Indication: OFF LABEL USE

REACTIONS (7)
  - Pain in extremity [Recovering/Resolving]
  - Skin laceration [Recovered/Resolved]
  - Fall [Recovering/Resolving]
  - Orthostatic hypotension [Recovered/Resolved]
  - Dehydration [Recovered/Resolved]
  - Tumour haemorrhage [Recovering/Resolving]
  - Back pain [Recovering/Resolving]

NARRATIVE: CASE EVENT DATE: 202010
